FAERS Safety Report 7030469-8 (Version None)
Quarter: 2010Q4

REPORT INFORMATION
  Report Type: 
  Country: None (occurrence: None)
  Receive Date: 20101006
  Receipt Date: 20100924
  Transmission Date: 20110411
  Serious: Yes (Other)
  Sender: FDA-Public Use
  Company Number: DE-ACTELION-A-CH2010-35031

PATIENT
  Sex: Male

DRUGS (3)
  1. ZAVESCA [Suspect]
     Indication: NIEMANN-PICK DISEASE
     Dosage: UNK , UNK
     Route: 048
  2. ZAVESCA [Suspect]
     Dosage: 100 MG, OD
     Route: 048
  3. ZAVESCA [Suspect]
     Dosage: 200 MG, TID
     Route: 048

REACTIONS (2)
  - DIALYSIS [None]
  - RENAL FAILURE [None]
